FAERS Safety Report 4807247-0 (Version None)
Quarter: 2005Q4

REPORT INFORMATION
  Report Type: 
  Country: None (occurrence: None)
  Receive Date: 20051020
  Receipt Date: 20051020
  Transmission Date: 20060501
  Serious: No
  Sender: FDA-Public Use
  Company Number: None

PATIENT
  Age: 8 Year
  Sex: Male
  Weight: 29.0302 kg

DRUGS (2)
  1. REMERON [Suspect]
     Indication: ANXIETY
     Dosage: 7.5 MG PO Q6PM    6 DOSES
  2. ADDERALL XR 10 [Concomitant]

REACTIONS (1)
  - RASH MACULO-PAPULAR [None]
